FAERS Safety Report 22136217 (Version 1)
Quarter: 2023Q1

REPORT INFORMATION
  Report Type: Spontaneous
  Country: ES (occurrence: ES)
  Receive Date: 20230324
  Receipt Date: 20230324
  Transmission Date: 20230418
  Serious: Yes (Death, Other)
  Sender: FDA-Public Use
  Company Number: None

PATIENT
  Age: 95 Year
  Sex: Male

DRUGS (1)
  1. DABIGATRAN ETEXILATE [Suspect]
     Active Substance: DABIGATRAN ETEXILATE
     Indication: Product used for unknown indication
     Dosage: 110 , 2 TABLETS EVERY 24 HOURS
     Route: 048
     Dates: start: 20140315, end: 20230310

REACTIONS (2)
  - Haemorrhage [Fatal]
  - Shock haemorrhagic [Fatal]

NARRATIVE: CASE EVENT DATE: 20140315
